FAERS Safety Report 7074998-X (Version None)
Quarter: 2010Q4

REPORT INFORMATION
  Report Type: 
  Country: None (occurrence: None)
  Receive Date: 20101029
  Receipt Date: 20100127
  Transmission Date: 20110411
  Serious: No
  Sender: FDA-Public Use
  Company Number: US-WYE-H13295110

PATIENT
  Sex: Female

DRUGS (2)
  1. ADVIL PM [Suspect]
     Route: 048
     Dates: start: 20100123, end: 20100123
  2. METHADONE [Concomitant]

REACTIONS (3)
  - DRUG INEFFECTIVE [None]
  - DRUG SCREEN FALSE POSITIVE [None]
  - OVERDOSE [None]
